FAERS Safety Report 10168820 (Version 1)
Quarter: 2014Q2

REPORT INFORMATION
  Report Type: Spontaneous
  Country: FR (occurrence: FR)
  Receive Date: 20140513
  Receipt Date: 20140513
  Transmission Date: 20141212
  Serious: Yes (Other)
  Sender: FDA-Public Use
  Company Number: FR-JNJFOC-20140504825

PATIENT
  Age: 85 Year
  Sex: Female

DRUGS (7)
  1. XARELTO [Suspect]
     Indication: PRODUCT USED FOR UNKNOWN INDICATION
     Route: 048
     Dates: start: 20131030, end: 20131106
  2. PERINDOPRIL [Concomitant]
     Route: 065
  3. SERESTA [Concomitant]
     Route: 065
     Dates: end: 20131023
  4. DAFALGAN [Concomitant]
     Route: 065
  5. ESIDREX [Concomitant]
     Route: 065
  6. BURINEX [Concomitant]
     Route: 065
  7. MIANSERIN [Concomitant]
     Route: 065

REACTIONS (2)
  - Overdose [Recovered/Resolved]
  - Prothrombin time shortened [Recovered/Resolved]
